FAERS Safety Report 17573708 (Version 5)
Quarter: 2020Q3

REPORT INFORMATION
  Report Type: Report from Study
  Country: DE (occurrence: DE)
  Receive Date: 20200323
  Receipt Date: 20200410
  Transmission Date: 20201104
  Serious: Yes (Hospitalization, Other)
  Sender: FDA-Public Use
  Company Number: DE-PFIZER INC-2020050817

PATIENT
  Age: 21 Year
  Sex: Female
  Weight: 57 kg

DRUGS (4)
  1. PANTOPRAZOLE [Suspect]
     Active Substance: PANTOPRAZOLE
     Indication: ABDOMINAL PAIN
     Dosage: 20 MG, 1X/DAY
     Route: 048
     Dates: start: 20200123, end: 20200129
  2. EVALUNA [Concomitant]
     Active Substance: ETHINYL ESTRADIOL\LEVONORGESTREL
     Indication: CONTRACEPTION
     Dosage: 1 DF, DAILY
     Route: 048
     Dates: start: 20200111, end: 20200129
  3. ABROCITINIB. [Suspect]
     Active Substance: ABROCITINIB
     Indication: DERMATITIS ATOPIC
     Dosage: 1X/DAY, BLINDED PHASE
     Route: 048
     Dates: start: 20191002, end: 20200127
  4. IBEROGAST [Suspect]
     Active Substance: HERBALS
     Indication: ABDOMINAL PAIN
     Dosage: 25 DROPS, 3X/DAY
     Route: 048
     Dates: start: 20200123, end: 20200129

REACTIONS (1)
  - Hepatitis E [Recovered/Resolved]

NARRATIVE: CASE EVENT DATE: 20200112
